FAERS Safety Report 8517031-2 (Version None)
Quarter: 2012Q3

REPORT INFORMATION
  Report Type: 
  Country: None (occurrence: None)
  Receive Date: 20120718
  Receipt Date: 20111014
  Transmission Date: 20120928
  Serious: No
  Sender: FDA-Public Use
  Company Number: US-FOUGERA-2012FO000170

PATIENT
  Age: 80 Year
  Sex: Male

DRUGS (4)
  1. AMLODIPINE [Concomitant]
     Indication: PRODUCT USED FOR UNKNOWN INDICATION
  2. SOTALOL HCL [Concomitant]
     Indication: PRODUCT USED FOR UNKNOWN INDICATION
  3. CLOTRIMAZOLE/BETAMETHASONE DIPROPIONATE [Suspect]
     Indication: FUNGAL INFECTION
     Route: 061
     Dates: start: 20111003, end: 20111010
  4. CLOTRIMAZOLE/BETAMETHASONE DIPROPIONATE [Suspect]
     Indication: PAIN
     Route: 061
     Dates: start: 20111003, end: 20111010

REACTIONS (2)
  - PAIN [None]
  - OFF LABEL USE [None]
